FAERS Safety Report 23983352 (Version 5)
Quarter: 2025Q3

REPORT INFORMATION
  Report Type: Report from Study
  Country: JP (occurrence: JP)
  Receive Date: 20240617
  Receipt Date: 20250924
  Transmission Date: 20251020
  Serious: Yes (Death)
  Sender: SHIONOGI
  Company Number: JP-shionogi-202404458_FTR_P_1

PATIENT
  Age: 49 Year
  Sex: Male
  Weight: 116 kg

DRUGS (14)
  1. CEFIDEROCOL [Suspect]
     Active Substance: CEFIDEROCOL
     Indication: Pancreatitis acute
     Route: 041
     Dates: start: 20240521, end: 20240530
  2. CEFIDEROCOL [Suspect]
     Active Substance: CEFIDEROCOL
     Indication: Walled-off pancreatic necrosis
  3. MEROPENEM [Concomitant]
     Active Substance: MEROPENEM
     Indication: Pancreatitis acute
     Route: 065
     Dates: start: 20240519, end: 20240521
  4. MEROPENEM [Concomitant]
     Active Substance: MEROPENEM
     Indication: Walled-off pancreatic necrosis
  5. MAXIPIME [Concomitant]
     Active Substance: CEFEPIME HYDROCHLORIDE
     Indication: Pancreatitis acute
     Route: 065
     Dates: start: 20240511, end: 20240519
  6. MAXIPIME [Concomitant]
     Active Substance: CEFEPIME HYDROCHLORIDE
     Indication: Walled-off pancreatic necrosis
  7. VANCOMYCIN [Concomitant]
     Active Substance: VANCOMYCIN
     Indication: Pancreatitis acute
     Route: 065
     Dates: start: 20240425, end: 20240523
  8. VANCOMYCIN [Concomitant]
     Active Substance: VANCOMYCIN
     Indication: Walled-off pancreatic necrosis
     Route: 065
     Dates: start: 20240528, end: 20240530
  9. METRONIDAZOLE [Concomitant]
     Active Substance: METRONIDAZOLE
     Indication: Pancreatitis acute
     Route: 065
     Dates: start: 20240521, end: 20240530
  10. METRONIDAZOLE [Concomitant]
     Active Substance: METRONIDAZOLE
     Indication: Walled-off pancreatic necrosis
  11. MICAFUNGIN SODIUM [Concomitant]
     Active Substance: MICAFUNGIN SODIUM
     Indication: Pancreatitis acute
     Route: 065
     Dates: start: 20240513, end: 20240530
  12. MICAFUNGIN SODIUM [Concomitant]
     Active Substance: MICAFUNGIN SODIUM
     Indication: Walled-off pancreatic necrosis
  13. AMIKACIN SULFATE [Concomitant]
     Active Substance: AMIKACIN SULFATE
     Indication: Pancreatitis acute
     Route: 065
     Dates: start: 20240528, end: 20240530
  14. AMIKACIN SULFATE [Concomitant]
     Active Substance: AMIKACIN SULFATE
     Indication: Walled-off pancreatic necrosis

REACTIONS (2)
  - Pancreatitis [Fatal]
  - Intestinal ischaemia [Fatal]

NARRATIVE: CASE EVENT DATE: 20240530
